FAERS Safety Report 25681762 (Version 2)
Quarter: 2025Q3

REPORT INFORMATION
  Report Type: Spontaneous
  Country: GB (occurrence: GB)
  Receive Date: 20250814
  Receipt Date: 20250912
  Transmission Date: 20251021
  Serious: Yes (Other)
  Sender: PFIZER
  Company Number: GB-MHRA-WEBRADR-202508111943377150-HLNFZ

PATIENT
  Age: 72 Year
  Sex: Female
  Weight: 80 kg

DRUGS (1)
  1. CARBOPLATIN [Suspect]
     Active Substance: CARBOPLATIN
     Dates: start: 20250811, end: 20250811

REACTIONS (2)
  - Joint swelling [Recovered/Resolved]
  - Peripheral swelling [Unknown]

NARRATIVE: CASE EVENT DATE: 20250801
